FAERS Safety Report 20441206 (Version 2)
Quarter: 2022Q2

REPORT INFORMATION
  Report Type: Spontaneous
  Country: US (occurrence: US)
  Receive Date: 20220208
  Receipt Date: 20220425
  Transmission Date: 20220720
  Serious: Yes (Other)
  Sender: FDA-Public Use
  Company Number: US-JNJFOC-20220207319

PATIENT
  Age: 71 Year
  Sex: Female

DRUGS (1)
  1. STELARA [Suspect]
     Active Substance: USTEKINUMAB
     Indication: Product used for unknown indication
     Route: 042

REACTIONS (2)
  - Nephrolithiasis [Not Recovered/Not Resolved]
  - Blood potassium abnormal [Not Recovered/Not Resolved]
